FAERS Safety Report 11500702 (Version 3)
Quarter: 2018Q1

REPORT INFORMATION
  Report Type: Report from Study
  Country: DE (occurrence: DE)
  Receive Date: 20150914
  Receipt Date: 20180202
  Transmission Date: 20180508
  Serious: Yes (Hospitalization, Other)
  Sender: FDA-Public Use
  Company Number: DE-SA-2015SA087164

PATIENT
  Age: 24 Year
  Sex: Female
  Weight: 66 kg

DRUGS (3)
  1. LEMTRADA [Suspect]
     Active Substance: ALEMTUZUMAB
     Indication: MULTIPLE SCLEROSIS
     Route: 041
     Dates: start: 20150603
  2. CARNITINE [Concomitant]
     Active Substance: CARNITINE
     Route: 065
  3. METHYLPREDNISOLONE. [Concomitant]
     Active Substance: METHYLPREDNISOLONE
     Route: 065

REACTIONS (58)
  - Hemiparesis [Unknown]
  - Hypoaesthesia [Unknown]
  - Mobility decreased [Unknown]
  - Cerebrovascular accident [Unknown]
  - Acne [Unknown]
  - Nuclear magnetic resonance imaging abnormal [Unknown]
  - Salivary hypersecretion [Unknown]
  - Spinal cord infection [Not Recovered/Not Resolved]
  - Electrocardiogram QT prolonged [Unknown]
  - Adjustment disorder with mixed anxiety and depressed mood [Unknown]
  - Vision blurred [Unknown]
  - Pain in extremity [Unknown]
  - Expanded disability status scale score increased [Unknown]
  - Dysphagia [Unknown]
  - Tremor [Unknown]
  - Sensory disturbance [Unknown]
  - Palpitations [Unknown]
  - Pain [Unknown]
  - Urinary tract infection [Unknown]
  - Bacterial test [Unknown]
  - Cough [Unknown]
  - Ataxia [Unknown]
  - Muscular weakness [Unknown]
  - Coordination abnormal [Unknown]
  - Arthralgia [Recovered/Resolved]
  - Pyrexia [Recovered/Resolved]
  - Hypersensitivity [Unknown]
  - Hyperacusis [Unknown]
  - Balance disorder [Unknown]
  - Epistaxis [Unknown]
  - Menorrhagia [Unknown]
  - Laceration [Unknown]
  - Renal pain [Unknown]
  - Pyrexia [Unknown]
  - Arthralgia [Unknown]
  - Bladder pain [Not Recovered/Not Resolved]
  - Micturition urgency [Unknown]
  - Dysuria [Unknown]
  - Rash [Recovered/Resolved]
  - Bradykinesia [Unknown]
  - Muscle tightness [Unknown]
  - Headache [Unknown]
  - Visual impairment [Unknown]
  - Influenza [Unknown]
  - Sleep disorder [Unknown]
  - Multiple sclerosis relapse [Not Recovered/Not Resolved]
  - Paraesthesia [Unknown]
  - Tongue movement disturbance [Unknown]
  - Parosmia [Unknown]
  - Chronic fatigue syndrome [Unknown]
  - Panic disorder [Unknown]
  - Lymphadenopathy [Unknown]
  - Genital burning sensation [Unknown]
  - Chills [Recovered/Resolved]
  - Gait disturbance [Unknown]
  - Hiccups [Unknown]
  - Cystitis [Not Recovered/Not Resolved]
  - Disturbance in attention [Unknown]

NARRATIVE: CASE EVENT DATE: 201506
